FAERS Safety Report 10910821 (Version 2)
Quarter: 2015Q2

REPORT INFORMATION
  Report Type: Spontaneous
  Country: US (occurrence: US)
  Receive Date: 20150312
  Receipt Date: 20150407
  Transmission Date: 20150821
  Serious: Yes (Hospitalization, Other)
  Sender: FDA-Public Use
  Company Number: US-009507513-1503USA005429

PATIENT
  Age: 58 Year
  Sex: Male

DRUGS (6)
  1. ZOFRAN [Concomitant]
     Active Substance: ONDANSETRON HYDROCHLORIDE
  2. FENTANYL. [Concomitant]
     Active Substance: FENTANYL
     Dosage: PATCH
  3. KEYTRUDA [Suspect]
     Active Substance: PEMBROLIZUMAB
     Indication: METASTATIC MALIGNANT MELANOMA
     Dosage: 1 TREATMENT DOSE (SPEFICATIONS NOT PROVIDED)
     Route: 042
     Dates: start: 20150203, end: 20150203
  4. TAMSULOSIN HYDROCHLORIDE. [Concomitant]
     Active Substance: TAMSULOSIN HYDROCHLORIDE
  5. PROSCAR [Concomitant]
     Active Substance: FINASTERIDE
     Route: 048
  6. BLOOD THINNER (UNSPECIFIED) [Concomitant]
     Active Substance: UNSPECIFIED INGREDIENT

REACTIONS (9)
  - Erythema [Unknown]
  - Skin warm [Unknown]
  - Drug dose omission [Unknown]
  - Vomiting [Unknown]
  - Malignant neoplasm progression [Unknown]
  - Pyrexia [Unknown]
  - Weight decreased [Unknown]
  - Fatigue [Unknown]
  - Joint swelling [Unknown]

NARRATIVE: CASE EVENT DATE: 201502
